FAERS Safety Report 20544369 (Version 1)
Quarter: 2022Q1

REPORT INFORMATION
  Report Type: Report from Study
  Country: SG (occurrence: SG)
  Receive Date: 20220303
  Receipt Date: 20220303
  Transmission Date: 20220423
  Serious: Yes (Other)
  Sender: FDA-Public Use
  Company Number: SG-GILEAD-2022-0571745

PATIENT
  Age: 38 Year
  Sex: Male

DRUGS (1)
  1. EMTRICITABINE\TENOFOVIR DISOPROXIL FUMARATE [Suspect]
     Active Substance: EMTRICITABINE\TENOFOVIR DISOPROXIL FUMARATE
     Indication: HIV infection
     Dosage: UNK
     Route: 048
     Dates: start: 2012, end: 2019

REACTIONS (1)
  - Osteoporosis [Unknown]
